FAERS Safety Report 9543267 (Version 2)
Quarter: 2014Q1

REPORT INFORMATION
  Report Type: Report from Study
  Country: US (occurrence: US)
  Receive Date: 20130923
  Receipt Date: 20140103
  Transmission Date: 20141002
  Serious: Yes (Hospitalization, Disabling, Other)
  Sender: FDA-Public Use
  Company Number: US-ABBVIE-13P-163-1147450-00

PATIENT
  Age: 52 Year
  Sex: Male
  Weight: 89.44 kg

DRUGS (12)
  1. HUMIRA [Suspect]
     Indication: CROHN^S DISEASE
     Route: 058
     Dates: start: 20130829
  2. HUMIRA [Suspect]
     Route: 058
  3. IBUPROFEN [Concomitant]
     Indication: PRODUCT USED FOR UNKNOWN INDICATION
  4. CELEXA [Concomitant]
     Indication: PRODUCT USED FOR UNKNOWN INDICATION
  5. HYDROCODONE SYP PE/CPM [Concomitant]
     Indication: PRODUCT USED FOR UNKNOWN INDICATION
  6. HYOMAX [Concomitant]
     Indication: PRODUCT USED FOR UNKNOWN INDICATION
  7. PROBIOTIC [Concomitant]
     Indication: PRODUCT USED FOR UNKNOWN INDICATION
  8. CIPROFLOXACIN HCL [Concomitant]
     Indication: PRODUCT USED FOR UNKNOWN INDICATION
     Dosage: DAILY
     Route: 048
     Dates: start: 20131016
  9. CLIDINIUM-CHLORDIAZEPOXIDE [Concomitant]
     Indication: PRODUCT USED FOR UNKNOWN INDICATION
     Dosage: 2.5-5 MG, ONE CAPSULE
     Route: 048
     Dates: start: 20100827
  10. HYDROCODONE-ACETAMINOPHEN [Concomitant]
     Indication: PRODUCT USED FOR UNKNOWN INDICATION
     Dosage: 7.5-325 MG
     Route: 048
     Dates: start: 20130718
  11. NEOMYCIN SULFATE [Concomitant]
     Indication: PRODUCT USED FOR UNKNOWN INDICATION
     Route: 048
     Dates: start: 20131031
  12. FENTANYL 72 HOUR [Concomitant]
     Indication: PRODUCT USED FOR UNKNOWN INDICATION
     Dosage: 25 MCG/HR
     Dates: start: 20130910

REACTIONS (4)
  - Fistula [Recovered/Resolved with Sequelae]
  - Abscess [Recovered/Resolved with Sequelae]
  - Abdominal lymphadenopathy [Unknown]
  - Renal oncocytoma [Unknown]
